FAERS Safety Report 5532103-2 (Version None)
Quarter: 2007Q4

REPORT INFORMATION
  Report Type: 
  Country: None (occurrence: None)
  Receive Date: 20071203
  Receipt Date: 20071126
  Transmission Date: 20080405
  Serious: Yes (Hospitalization)
  Sender: FDA-Public Use
  Company Number: D0054358A

PATIENT
  Age: 69 Year
  Sex: Male

DRUGS (6)
  1. QUILONUM RETARD [Suspect]
     Dosage: 450MG TWICE PER DAY
     Route: 048
  2. SEVOFLURANE [Suspect]
     Route: 055
     Dates: start: 20070801, end: 20070801
  3. PROPOFOL [Suspect]
     Route: 042
     Dates: start: 20070801, end: 20070801
  4. FENTANYL [Suspect]
     Route: 042
     Dates: start: 20070801, end: 20070801
  5. ROCURONIUM BROMIDE [Suspect]
     Route: 042
     Dates: start: 20070801, end: 20070801
  6. LITHIUM [Concomitant]
     Indication: BIPOLAR DISORDER
     Route: 048

REACTIONS (5)
  - CONFUSIONAL STATE [None]
  - DEPRESSION [None]
  - DRUG ADMINISTRATION ERROR [None]
  - DRUG INTERACTION [None]
  - PSYCHOTIC DISORDER [None]
